FAERS Safety Report 4864634-2 (Version None)
Quarter: 2005Q4

REPORT INFORMATION
  Report Type: 
  Country: None (occurrence: None)
  Receive Date: 20051201
  Receipt Date: 20050701
  Transmission Date: 20060501
  Serious: No
  Sender: FDA-Public Use
  Company Number: 2005PV000227

PATIENT
  Age: 76 Year
  Sex: Female
  Weight: 74.3899 kg

DRUGS (15)
  1. BYETTA [Suspect]
     Indication: DIABETES MELLITUS NON-INSULIN-DEPENDENT
     Dosage: 5 UG, BID, SC
     Route: 058
     Dates: start: 20050701, end: 20050704
  2. AMARYL [Concomitant]
  3. NORVASC [Concomitant]
  4. ATACAND [Concomitant]
  5. METOPROLOL [Concomitant]
  6. CLONIDINE [Concomitant]
  7. LIPITOR [Concomitant]
  8. SYNTHROID [Concomitant]
  9. CALCITGRIOL [Concomitant]
  10. VITAMIN B-12 [Concomitant]
  11. FUROSEMIDE [Concomitant]
  12. ZETIA [Concomitant]
  13. PROTONIX [Concomitant]
  14. RENAGEL [Concomitant]
  15. LANTUS [Concomitant]

REACTIONS (3)
  - BLOOD GLUCOSE DECREASED [None]
  - DEPRESSED LEVEL OF CONSCIOUSNESS [None]
  - HYPERHIDROSIS [None]
